FAERS Safety Report 9019639 (Version 1)
Quarter: 2013Q1

REPORT INFORMATION
  Report Type: Spontaneous
  Country: US (occurrence: US)
  Receive Date: 20130118
  Receipt Date: 20130118
  Transmission Date: 20140127
  Serious: No
  Sender: FDA-Public Use
  Company Number: US-BRISTOL-MYERS SQUIBB COMPANY-16395121

PATIENT
  Sex: Male

DRUGS (2)
  1. ABILIFY ORAL SOLUTION [Suspect]
     Indication: BIPOLAR DISORDER
     Dosage: 1DF=1 MG ORAL SUSPENSION TO 0.5 MG ORAL SUSPENSION
     Route: 048
  2. DEPAKOTE [Suspect]
     Indication: BIPOLAR DISORDER

REACTIONS (2)
  - Dyskinesia [Unknown]
  - Weight increased [Unknown]
